FAERS Safety Report 8931768 (Version 1)
Quarter: 2012Q4

REPORT INFORMATION
  Report Type: 
  Country: DK (occurrence: FR)
  Receive Date: 20121128
  Receipt Date: 20121128
  Transmission Date: 20130627
  Serious: Yes (Hospitalization)
  Sender: FDA-Public Use
  Company Number: FR-FRI-1000040620

PATIENT
  Age: 83 Year
  Sex: Female

DRUGS (5)
  1. ESCITALOPRAM [Suspect]
     Route: 048
     Dates: start: 201207
  2. LASILIX [Suspect]
     Indication: HYPERTENSION
     Dosage: 125 MG
     Route: 048
     Dates: start: 20110613
  3. PLAVIX [Concomitant]
     Dosage: 75 mg
     Route: 048
  4. LEVOTHYROX [Concomitant]
     Dosage: 1 DF
  5. TRIATEC [Concomitant]
     Indication: HYPERTENSION
     Dosage: 0.625
     Route: 048

REACTIONS (2)
  - Hyponatraemia [Recovered/Resolved with Sequelae]
  - Incorrect dose administered [Recovered/Resolved with Sequelae]
